FAERS Safety Report 6165162-7 (Version None)
Quarter: 2009Q2

REPORT INFORMATION
  Report Type: 
  Country: None (occurrence: None)
  Receive Date: 20090421
  Receipt Date: 20090421
  Transmission Date: 20091009
  Serious: Yes (Other)
  Sender: FDA-Public Use
  Company Number: None

PATIENT
  Age: 68 Year
  Sex: Female
  Weight: 74.8435 kg

DRUGS (1)
  1. RANOLAZINE 500MG DSM -CV THERAPEUTICS- [Suspect]
     Indication: ANGINA PECTORIS
     Dosage: 1000MG TWO TIMES A DAY PO
     Route: 048
     Dates: start: 20061208, end: 20090420

REACTIONS (2)
  - HEPATIC NEOPLASM [None]
  - NON-HODGKIN'S LYMPHOMA [None]
